FAERS Safety Report 7759491-0 (Version None)
Quarter: 2011Q3

REPORT INFORMATION
  Report Type: 
  Country: None (occurrence: None)
  Receive Date: 20110919
  Receipt Date: 20110919
  Transmission Date: 20111222
  Serious: No
  Sender: FDA-Public Use
  Company Number: None

PATIENT
  Sex: Female

DRUGS (1)
  1. CELEXA [Suspect]
     Indication: DEPRESSION
     Dosage: 60 MG

REACTIONS (6)
  - CRYING [None]
  - GAIT DISTURBANCE [None]
  - INCORRECT DOSE ADMINISTERED [None]
  - SUICIDAL IDEATION [None]
  - ARTHROPATHY [None]
  - FEELING ABNORMAL [None]
